FAERS Safety Report 18260714 (Version 1)
Quarter: 2020Q3

REPORT INFORMATION
  Report Type: Spontaneous
  Country: CN (occurrence: CN)
  Receive Date: 20200914
  Receipt Date: 20200914
  Transmission Date: 20201103
  Serious: Yes (Other)
  Sender: FDA-Public Use
  Company Number: CN-PFIZER INC-2020348804

PATIENT
  Age: 43 Year
  Sex: Male
  Weight: 57 kg

DRUGS (6)
  1. CELLCEPT [Concomitant]
     Active Substance: MYCOPHENOLATE MOFETIL\MYCOPHENOLATE MOFETIL HYDROCHLORIDE
     Indication: ACUTE MYELOID LEUKAEMIA
     Dosage: 500 MG, 2X/DAY
     Route: 048
     Dates: start: 20191225, end: 20200113
  2. SANDIMMUN [Suspect]
     Active Substance: CYCLOSPORINE
     Dosage: 40 MG, 2X/DAY
     Route: 041
     Dates: start: 20191231, end: 20200103
  3. SANDIMMUN [Suspect]
     Active Substance: CYCLOSPORINE
     Indication: ACUTE MYELOID LEUKAEMIA
     Dosage: 60 MG, 2X/DAY
     Route: 041
     Dates: start: 20191226, end: 20191227
  4. SANDIMMUN [Suspect]
     Active Substance: CYCLOSPORINE
     Dosage: INCREASED TO 35 MG ONCE EVERY 12 HOURS (AS REPORTED)
     Route: 041
     Dates: start: 20200110
  5. METHOTREXATE. [Suspect]
     Active Substance: METHOTREXATE
     Indication: ACUTE MYELOID LEUKAEMIA
     Dosage: 17 MG, 1X/DAY
     Route: 041
     Dates: start: 20191224, end: 20191224
  6. SANDIMMUN [Suspect]
     Active Substance: CYCLOSPORINE
     Dosage: 50 MG, 2X/DAY
     Route: 041
     Dates: start: 20191228, end: 20191230

REACTIONS (1)
  - Cystitis haemorrhagic [Recovering/Resolving]

NARRATIVE: CASE EVENT DATE: 20200103
